FAERS Safety Report 6121918-8 (Version None)
Quarter: 2009Q1

REPORT INFORMATION
  Report Type: 
  Country: None (occurrence: None)
  Receive Date: 20090313
  Receipt Date: 20090306
  Transmission Date: 20090719
  Serious: Yes (Death, Hospitalization, Disabling, Other)
  Sender: FDA-Public Use
  Company Number: 2007SP017609

PATIENT
  Age: 59 Year
  Sex: Male
  Weight: 65 kg

DRUGS (26)
  1. TEMODAL [Suspect]
     Indication: GLIOBLASTOMA MULTIFORME
     Dosage: SEE IMAGE
     Route: 048
     Dates: start: 20061004, end: 20061114
  2. TEMODAL [Suspect]
     Indication: GLIOBLASTOMA MULTIFORME
     Dosage: SEE IMAGE
     Route: 048
     Dates: start: 20061214, end: 20061218
  3. TEMODAL [Suspect]
     Indication: GLIOBLASTOMA MULTIFORME
     Dosage: SEE IMAGE
     Route: 048
     Dates: start: 20070209, end: 20070213
  4. TEMODAL [Suspect]
     Indication: GLIOBLASTOMA MULTIFORME
     Dosage: SEE IMAGE
     Route: 048
     Dates: start: 20070310, end: 20070314
  5. TEMODAL [Suspect]
     Indication: GLIOBLASTOMA MULTIFORME
     Dosage: SEE IMAGE
     Route: 048
     Dates: start: 20070404, end: 20070408
  6. TEMODAL [Suspect]
     Indication: GLIOBLASTOMA MULTIFORME
     Dosage: SEE IMAGE
     Route: 048
     Dates: start: 20070509, end: 20070513
  7. TEMODAL [Suspect]
     Indication: GLIOBLASTOMA MULTIFORME
     Dosage: SEE IMAGE
     Route: 048
     Dates: start: 20070606, end: 20070610
  8. TEMODAL [Suspect]
     Indication: GLIOBLASTOMA MULTIFORME
     Dosage: SEE IMAGE
     Route: 048
     Dates: start: 20070704, end: 20070708
  9. TEMODAL [Suspect]
     Indication: GLIOBLASTOMA MULTIFORME
     Dosage: SEE IMAGE
     Route: 048
     Dates: start: 20070815, end: 20070819
  10. TEMODAL [Suspect]
     Indication: GLIOBLASTOMA MULTIFORME
     Dosage: SEE IMAGE
     Route: 048
     Dates: start: 20070913, end: 20070917
  11. TEMODAL [Suspect]
     Indication: GLIOBLASTOMA MULTIFORME
     Dosage: SEE IMAGE
     Route: 048
     Dates: start: 20071010, end: 20071014
  12. TEMODAL [Suspect]
     Indication: GLIOBLASTOMA MULTIFORME
     Dosage: SEE IMAGE
     Route: 048
     Dates: start: 20071107, end: 20071111
  13. TEMODAL [Suspect]
     Indication: GLIOBLASTOMA MULTIFORME
     Dosage: SEE IMAGE
     Route: 048
     Dates: start: 20071205, end: 20071209
  14. CARBOMERCK (CARBOPLATIN) [Suspect]
     Indication: GLIOBLASTOMA MULTIFORME
     Dosage: INDRP
     Route: 041
     Dates: start: 20070110, end: 20070110
  15. VEPESID [Suspect]
     Indication: GLIOBLASTOMA MULTIFORME
     Dosage: INDRP
     Route: 041
     Dates: start: 20070110, end: 20070112
  16. BAKTAR [Concomitant]
  17. DEPAKENE [Concomitant]
  18. MAGNESIUM OXIDE [Concomitant]
  19. NAVOBAN [Concomitant]
  20. PRIMEPERAN [Concomitant]
  21. AMOBAN [Concomitant]
  22. OMEPRAL [Concomitant]
  23. MYSLEE [Concomitant]
  24. RINDERON [Concomitant]
  25. KYTRIL [Concomitant]
  26. DECADRON [Concomitant]

REACTIONS (9)
  - APHASIA [None]
  - DYSPNOEA [None]
  - HEMIPLEGIA [None]
  - NEOPLASM PROGRESSION [None]
  - NEOPLASM RECURRENCE [None]
  - NEUTROPHIL COUNT DECREASED [None]
  - PLATELET COUNT DECREASED [None]
  - VENOUS THROMBOSIS [None]
  - WHITE BLOOD CELL COUNT DECREASED [None]
